FAERS Safety Report 9185980 (Version 1)
Quarter: 2013Q1

REPORT INFORMATION
  Report Type: Spontaneous
  Country: IT (occurrence: IT)
  Receive Date: 20130325
  Receipt Date: 20130325
  Transmission Date: 20140127
  Serious: Yes (Other)
  Sender: FDA-Public Use
  Company Number: IT-TEVA-392940ISR

PATIENT
  Age: 38 None
  Sex: Female

DRUGS (2)
  1. CARBOPLATINO TEVA [Suspect]
     Indication: NEOPLASM MALIGNANT
     Dosage: 900 MILLIGRAM DAILY;
     Route: 042
     Dates: start: 20130111, end: 20130205
  2. XELODA [Concomitant]
     Indication: NEOPLASM MALIGNANT
     Route: 048
     Dates: start: 20130111, end: 20130205

REACTIONS (6)
  - Throat tightness [Recovered/Resolved]
  - Chest discomfort [Recovered/Resolved]
  - Cough [Recovered/Resolved]
  - Bronchospasm [Recovered/Resolved]
  - Erythema [Recovered/Resolved]
  - Tongue oedema [Recovered/Resolved]
